FAERS Safety Report 4437080-3 (Version None)
Quarter: 2004Q3

REPORT INFORMATION
  Report Type: 
  Country: None (occurrence: None)
  Receive Date: 20040830
  Receipt Date: 20040618
  Transmission Date: 20050211
  Serious: Yes (Life-Threatening)
  Sender: FDA-Public Use
  Company Number: PHHO2004CA08747

PATIENT
  Age: 37 Year
  Sex: Male

DRUGS (7)
  1. CLOZARIL [Suspect]
     Indication: SCHIZOPHRENIA
     Route: 048
     Dates: start: 20040202, end: 20040729
  2. INTERFERON [Concomitant]
     Dates: start: 20040614
  3. ISOTRETINOIN [Concomitant]
     Dosage: UNK
     Dates: start: 20031026
  4. TOPIRAMATE [Concomitant]
     Dosage: UNK
     Dates: start: 20031025
  5. DISULFIRAM [Concomitant]
     Dosage: UNK
     Dates: start: 20040220
  6. MIRTAZAPINE [Concomitant]
     Dosage: UNK
     Dates: start: 20040525
  7. RIBAVIRIN [Concomitant]
     Dosage: UNK

REACTIONS (3)
  - AGRANULOCYTOSIS [None]
  - HEPATITIS C [None]
  - NEUTROPENIA [None]
